FAERS Safety Report 7560689-5 (Version None)
Quarter: 2011Q2

REPORT INFORMATION
  Report Type: 
  Country: None (occurrence: None)
  Receive Date: 20110621
  Receipt Date: 20110616
  Transmission Date: 20111010
  Serious: No
  Sender: FDA-Public Use
  Company Number: US-PFIZER INC-2011107263

PATIENT
  Sex: Female
  Weight: 77.1 kg

DRUGS (1)
  1. ADVIL MIGRAINE LIQUI-GELS [Suspect]
     Indication: MIGRAINE
     Dosage: 200 MG, 2X/DAY
     Route: 048
     Dates: start: 20110513, end: 20110514

REACTIONS (1)
  - DRUG INEFFECTIVE [None]
